FAERS Safety Report 7436740-X (Version None)
Quarter: 2011Q2

REPORT INFORMATION
  Report Type: 
  Country: None (occurrence: None)
  Receive Date: 20110426
  Receipt Date: 20110418
  Transmission Date: 20111010
  Serious: Yes (Other)
  Sender: FDA-Public Use
  Company Number: JP-ELI_LILLY_AND_COMPANY-JP201104005388

PATIENT
  Age: 21 Year
  Sex: Male

DRUGS (4)
  1. RIVOTRIL [Concomitant]
  2. EXCEGRAN [Concomitant]
  3. SELENICA-R [Concomitant]
  4. ZYPREXA [Suspect]
     Indication: SCHIZOPHRENIA
     Dosage: 10 MG, PRN
     Route: 048
     Dates: start: 20110416

REACTIONS (1)
  - HYPERSOMNIA [None]
